FAERS Safety Report 5923874-1 (Version None)
Quarter: 2008Q4

REPORT INFORMATION
  Report Type: 
  Country: None (occurrence: None)
  Receive Date: 20081015
  Receipt Date: 20081001
  Transmission Date: 20090506
  Serious: Yes (Hospitalization, Disabling)
  Sender: FDA-Public Use
  Company Number: MSTR-NO-0807S-0038

PATIENT
  Age: 67 Year
  Sex: Male

DRUGS (1)
  1. METASTRON [Suspect]
     Indication: METASTATIC PAIN
     Dosage: NR, SINGLE DOSE, I.V.
     Route: 042
     Dates: start: 20080401, end: 20080401

REACTIONS (3)
  - GAIT DISTURBANCE [None]
  - HAEMATOCHEZIA [None]
  - MONOPLEGIA [None]
